FAERS Safety Report 25765981 (Version 1)
Quarter: 2025Q3

REPORT INFORMATION
  Report Type: Spontaneous
  Country: US (occurrence: US)
  Receive Date: 20250905
  Receipt Date: 20250905
  Transmission Date: 20251020
  Serious: No
  Sender: DOMPE FARMACEUTICI
  Company Number: US-FARMAPROD-202407-2689

PATIENT
  Sex: Female

DRUGS (26)
  1. OXERVATE [Suspect]
     Active Substance: CENEGERMIN-BKBJ
     Indication: Product used for unknown indication
     Route: 047
     Dates: start: 20240702
  2. CARTEOLOL HYDROCHLORIDE [Concomitant]
     Active Substance: CARTEOLOL HYDROCHLORIDE
  3. ZADITOR [Concomitant]
     Active Substance: KETOTIFEN FUMARATE
  4. PATADAY ONCE DAILY RELIEF [Concomitant]
     Active Substance: OLOPATADINE HYDROCHLORIDE
  5. REFRESH CELLUVISC [Concomitant]
     Active Substance: CARBOXYMETHYLCELLULOSE SODIUM
  6. SYSTANE GEL [Concomitant]
  7. VITAMIN D2 [Concomitant]
     Active Substance: ERGOCALCIFEROL
  8. VITAMINS [Concomitant]
     Active Substance: VITAMINS
  9. CALCIUM+ D [Concomitant]
  10. VEVYE [Concomitant]
     Active Substance: CYCLOSPORINE
  11. VYZULTA [Concomitant]
     Active Substance: LATANOPROSTENE BUNOD
  12. RHOPRESSA [Concomitant]
     Active Substance: NETARSUDIL MESYLATE
  13. DORZOLAMIDE [Concomitant]
     Active Substance: DORZOLAMIDE
  14. ASPIRIN [Concomitant]
     Active Substance: ASPIRIN
  15. ZOLPIDEM TARTRATE [Concomitant]
     Active Substance: ZOLPIDEM TARTRATE
  16. VALACYCLOVIR [Concomitant]
     Active Substance: VALACYCLOVIR HYDROCHLORIDE
  17. ROSUVASTATIN CALCIUM [Concomitant]
     Active Substance: ROSUVASTATIN CALCIUM
  18. PREDNISONE [Concomitant]
     Active Substance: PREDNISONE
  19. PANTOPRAZOLE SODIUM [Concomitant]
     Active Substance: PANTOPRAZOLE SODIUM
  20. OXYCODONE AND ACETAMINOPHEN [Concomitant]
     Active Substance: ACETAMINOPHEN\OXYCODONE HYDROCHLORIDE
  21. METHOTREXATE [Concomitant]
     Active Substance: METHOTREXATE
  22. DULOXETINE HYDROCHLORIDE [Concomitant]
     Active Substance: DULOXETINE HYDROCHLORIDE
  23. CILOSTAZOL [Concomitant]
     Active Substance: CILOSTAZOL
  24. CELEBREX [Concomitant]
     Active Substance: CELECOXIB
  25. AMLODIPINE BESYLATE [Concomitant]
     Active Substance: AMLODIPINE BESYLATE
  26. ORENCIA [Concomitant]
     Active Substance: ABATACEPT

REACTIONS (2)
  - Eye irritation [Unknown]
  - Eye pain [Unknown]
